FAERS Safety Report 4367549-1 (Version None)
Quarter: 2004Q2

REPORT INFORMATION
  Report Type: 
  Country: None (occurrence: None)
  Receive Date: 20040601
  Receipt Date: 20040420
  Transmission Date: 20050107
  Serious: Yes (Hospitalization)
  Sender: FDA-Public Use
  Company Number: JP-MERCK-0404USA01927

PATIENT
  Age: 68 Year
  Sex: Female
  Weight: 58 kg

DRUGS (6)
  1. CALCITRIOL [Concomitant]
     Indication: OSTEOPOROSIS
     Route: 065
     Dates: start: 19970612
  2. GEFARNATE [Concomitant]
     Indication: GASTRITIS
     Route: 065
     Dates: start: 20030819
  3. KALLIKREIN [Concomitant]
     Route: 065
     Dates: start: 20000711
  4. MISOPROSTOL [Concomitant]
     Indication: GASTRITIS
     Route: 065
     Dates: start: 20031030
  5. PREDNISOLONE [Concomitant]
     Indication: MONARTHRITIS
     Route: 065
     Dates: start: 19940307
  6. CLINORIL [Suspect]
     Indication: JUVENILE ARTHRITIS
     Route: 048
     Dates: start: 20040406

REACTIONS (3)
  - JUVENILE ARTHRITIS [None]
  - POLYMYOSITIS [None]
  - RENAL IMPAIRMENT [None]
